FAERS Safety Report 4420790-1 (Version None)
Quarter: 2004Q3

REPORT INFORMATION
  Report Type: 
  Country: None (occurrence: None)
  Receive Date: 20040809
  Receipt Date: 20040601
  Transmission Date: 20050211
  Serious: No
  Sender: FDA-Public Use
  Company Number: US-GLAXOSMITHKLINE-A0512762A

PATIENT

DRUGS (1)
  1. PAXIL [Suspect]
     Indication: DRUG USE FOR UNKNOWN INDICATION
     Route: 048

REACTIONS (5)
  - EXCESSIVE MASTURBATION [None]
  - GENERAL SYMPTOM [None]
  - SEXUAL DYSFUNCTION [None]
  - TESTICULAR DISORDER [None]
  - VULVOVAGINAL DISCOMFORT [None]
